FAERS Safety Report 20447368 (Version 1)
Quarter: 2022Q1

REPORT INFORMATION
  Report Type: Spontaneous
  Country: IL (occurrence: IL)
  Receive Date: 20220209
  Receipt Date: 20220209
  Transmission Date: 20220423
  Serious: Yes (Hospitalization)
  Sender: FDA-Public Use
  Company Number: IL-CELLTRION INC.-2022IL001129

PATIENT

DRUGS (5)
  1. RITUXIMAB [Suspect]
     Active Substance: RITUXIMAB
     Indication: Nephrotic syndrome
     Dosage: 375 MG/M2 (NUMBER OF RTX DOSES: 4)
  2. RITUXIMAB [Suspect]
     Active Substance: RITUXIMAB
     Indication: Prophylaxis
  3. PREDNISONE [Concomitant]
     Active Substance: PREDNISONE
     Dosage: ROUTINE MAINTENANCE THERAPY
  4. TACROLIMUS [Concomitant]
     Active Substance: TACROLIMUS
     Dosage: ROUTINE MAINTENANCE THERAPY
  5. MYCOPHENOLIC ACID [Concomitant]
     Active Substance: MYCOPHENOLIC ACID
     Dosage: ROUTINE MAINTENANCE THERAPY

REACTIONS (3)
  - Glomerular filtration rate decreased [Unknown]
  - Off label use [Unknown]
  - Drug effective for unapproved indication [Unknown]
